FAERS Safety Report 23319337 (Version 1)
Quarter: 2023Q4

REPORT INFORMATION
  Report Type: Spontaneous
  Country: SE (occurrence: SE)
  Receive Date: 20231220
  Receipt Date: 20231220
  Transmission Date: 20240110
  Serious: Yes (Disabling, Other)
  Sender: FDA-Public Use
  Company Number: SE-GILEAD-2023-0655279

PATIENT
  Sex: Female

DRUGS (1)
  1. TRODELVY [Suspect]
     Active Substance: SACITUZUMAB GOVITECAN-HZIY
     Indication: Product used for unknown indication
     Dosage: UNK
     Route: 065

REACTIONS (2)
  - Feeling of despair [Unknown]
  - Fatigue [Unknown]
